FAERS Safety Report 23225130 (Version 1)
Quarter: 2023Q4

REPORT INFORMATION
  Report Type: Spontaneous
  Country: US (occurrence: US)
  Receive Date: 20231124
  Receipt Date: 20231124
  Transmission Date: 20240110
  Serious: No
  Sender: FDA-Public Use
  Company Number: US-APOTEX-2023AP000114

PATIENT
  Sex: Female

DRUGS (1)
  1. KETOROLAC TROMETHAMINE [Suspect]
     Active Substance: KETOROLAC TROMETHAMINE
     Indication: Cataract
     Dosage: 2 GTT DROPS, 2-3 TIMES A DAY
     Route: 047
     Dates: end: 20230102

REACTIONS (6)
  - Product dose omission issue [Unknown]
  - Suspected product contamination [Unknown]
  - No adverse event [Unknown]
  - Product container seal issue [Unknown]
  - Wrong technique in product usage process [Unknown]
  - Device defective [Unknown]
